FAERS Safety Report 19704518 (Version 1)
Quarter: 2021Q3

REPORT INFORMATION
  Report Type: Spontaneous
  Country: US (occurrence: US)
  Receive Date: 20210816
  Receipt Date: 20210816
  Transmission Date: 20211014
  Serious: Yes (Disabling)
  Sender: FDA-Public Use
  Company Number: None

PATIENT
  Age: 65 Year
  Sex: Female
  Weight: 63 kg

DRUGS (10)
  1. MELOXICAM 15MG [Concomitant]
     Active Substance: MELOXICAM
  2. VITAMIN D3 [Concomitant]
     Active Substance: CHOLECALCIFEROL
  3. NIFEDIPINE ER 30MG TABLET [Concomitant]
     Active Substance: NIFEDIPINE
  4. MAGNESIUM [Concomitant]
     Active Substance: MAGNESIUM
  5. CITRACAL [Concomitant]
     Active Substance: CALCIUM CITRATE
  6. SOY LECITHIN [Concomitant]
     Active Substance: LECITHIN, SOYBEAN
  7. CVS URINARY PAIN RELIEF [Concomitant]
  8. IBANDRONATE SODIUM 150MG [Suspect]
     Active Substance: IBANDRONATE SODIUM
     Indication: OSTEOPOROSIS
     Dosage: ?          OTHER FREQUENCY:ONCE MONTHLY;?
     Route: 048
     Dates: start: 20200901, end: 20210702
  9. TYLENOL [Concomitant]
     Active Substance: ACETAMINOPHEN
  10. IBANDRONATE SODIUM 150MG [Suspect]
     Active Substance: IBANDRONATE SODIUM
     Indication: OSTEOPENIA
     Dosage: ?          OTHER FREQUENCY:ONCE MONTHLY;?
     Route: 048
     Dates: start: 20200901, end: 20210702

REACTIONS (8)
  - Arthralgia [None]
  - Hyperkalaemia [None]
  - Pelvic pain [None]
  - COVID-19 [None]
  - Bladder pain [None]
  - Micturition urgency [None]
  - Proctalgia [None]
  - Dyspareunia [None]

NARRATIVE: CASE EVENT DATE: 20200801
